FAERS Safety Report 24143605 (Version 1)
Quarter: 2024Q3

REPORT INFORMATION
  Report Type: Spontaneous
  Country: AU (occurrence: AU)
  Receive Date: 20240727
  Receipt Date: 20240727
  Transmission Date: 20241017
  Serious: Yes (Hospitalization)
  Sender: NOVITIUM PHARMA
  Company Number: AU-NOVITIUMPHARMA-2024AUNVP01394

PATIENT
  Sex: Male

DRUGS (9)
  1. CARBAMAZEPINE [Suspect]
     Active Substance: CARBAMAZEPINE
     Indication: Febrile infection-related epilepsy syndrome
  2. LEVETIRACETAM [Concomitant]
     Active Substance: LEVETIRACETAM
     Indication: Febrile infection-related epilepsy syndrome
  3. Thiopental-sodium [Concomitant]
     Indication: Febrile infection-related epilepsy syndrome
  4. TOPIRAMATE [Concomitant]
     Active Substance: TOPIRAMATE
     Indication: Febrile infection-related epilepsy syndrome
  5. PHENOBARBITAL [Concomitant]
     Active Substance: PHENOBARBITAL
     Indication: Febrile infection-related epilepsy syndrome
  6. CLONAZEPAM [Concomitant]
     Active Substance: CLONAZEPAM
     Indication: Febrile infection-related epilepsy syndrome
  7. VALPROATE SODIUM [Concomitant]
     Active Substance: VALPROATE SODIUM
     Indication: Febrile infection-related epilepsy syndrome
  8. PHENYTOIN [Concomitant]
     Active Substance: PHENYTOIN
     Indication: Febrile infection-related epilepsy syndrome
  9. PROPOFOL [Concomitant]
     Active Substance: PROPOFOL
     Indication: Febrile infection-related epilepsy syndrome

REACTIONS (1)
  - Drug ineffective [Unknown]
